FAERS Safety Report 8499690-6 (Version None)
Quarter: 2012Q3

REPORT INFORMATION
  Report Type: 
  Country: None (occurrence: None)
  Receive Date: 20120710
  Receipt Date: 20120707
  Transmission Date: 20120928
  Serious: Yes (Death)
  Sender: FDA-Public Use
  Company Number: JP-PFIZER INC-2012162827

PATIENT
  Sex: Male

DRUGS (2)
  1. VARENICLINE TARTRATE [Suspect]
     Indication: NICOTINE DEPENDENCE
     Dosage: 0.5 MG/DAY
     Route: 048
     Dates: start: 20120704
  2. VARENICLINE TARTRATE [Suspect]
     Indication: SMOKING CESSATION THERAPY

REACTIONS (1)
  - DEATH [None]
